FAERS Safety Report 8476819-7 (Version None)
Quarter: 2012Q2

REPORT INFORMATION
  Report Type: 
  Country: None (occurrence: None)
  Receive Date: 20120629
  Receipt Date: 20120615
  Transmission Date: 20120825
  Serious: Yes (Other)
  Sender: FDA-Public Use
  Company Number: TR-RANBAXY-2012RR-56741

PATIENT
  Age: 51 Year
  Sex: Female

DRUGS (6)
  1. CIPROFLOXACIN [Suspect]
     Indication: URINARY TRACT INFECTION
     Dosage: 750 MG, BID
     Route: 065
  2. DULOXETINE HYDROCHLORIDE [Concomitant]
     Dosage: 60 MG/DAY
     Route: 065
  3. DULOXETINE HYDROCHLORIDE [Suspect]
     Indication: PANIC DISORDER
     Dosage: 60 MG/DAY
     Route: 065
  4. ALPRAZOLAM [Concomitant]
     Indication: PANIC DISORDER
     Dosage: 0.5 MG, TID
     Route: 065
  5. TRIMETROPRIM+SULFAMETOXAZOL [Concomitant]
     Indication: URINARY TRACT INFECTION
     Dosage: UNK
     Route: 065
  6. NEBIVOLOL [Concomitant]
     Indication: HYPERTENSION
     Dosage: 5 MG/DAY
     Route: 065

REACTIONS (2)
  - DRUG INTERACTION [None]
  - SEROTONIN SYNDROME [None]
